FAERS Safety Report 25207519 (Version 1)
Quarter: 2025Q2

REPORT INFORMATION
  Report Type: Report from Study
  Country: BR (occurrence: BR)
  Receive Date: 20250417
  Receipt Date: 20250417
  Transmission Date: 20250716
  Serious: Yes (Congenital Anomaly, Other)
  Sender: EMD SERONO INC
  Company Number: BR-Merck Healthcare KGaA-2025018538

PATIENT
  Sex: Female
  Weight: 4 kg

DRUGS (1)
  1. INTERFERON BETA-1A [Suspect]
     Active Substance: INTERFERON BETA-1A
     Indication: Multiple sclerosis
     Dosage: PRODUCT TAKEN BY BABY^S MOTHER
     Dates: start: 20190722, end: 20240704

REACTIONS (3)
  - Tethered oral tissue [Unknown]
  - Jaundice neonatal [Unknown]
  - Foetal exposure during pregnancy [Recovered/Resolved]
